FAERS Safety Report 5723944-7 (Version None)
Quarter: 2008Q2

REPORT INFORMATION
  Report Type: 
  Country: None (occurrence: None)
  Receive Date: 20080430
  Receipt Date: 20080421
  Transmission Date: 20081010
  Serious: Yes (Hospitalization)
  Sender: FDA-Public Use
  Company Number: JP-SANOFI-SYNTHELABO-F01200700953

PATIENT
  Sex: Female

DRUGS (12)
  1. GLYSENNID [Concomitant]
     Indication: PAINFUL DEFAECATION
     Dosage: 24 MG
     Route: 048
     Dates: start: 20070724, end: 20070724
  2. DEPAKENE [Concomitant]
     Indication: DEPRESSION
     Dosage: 200 MG
     Route: 048
     Dates: start: 20060310, end: 20070724
  3. DEPAKENE [Concomitant]
     Dosage: 200 MG
     Route: 048
     Dates: start: 20070729, end: 20070802
  4. DEPAKENE [Concomitant]
     Dosage: 100 MG
     Route: 048
     Dates: start: 20070803
  5. ZOLPIDEM TARTRATE [Suspect]
     Indication: INSOMNIA
     Dosage: 12.5 MG
     Route: 048
     Dates: start: 20070608, end: 20070724
  6. ZOLPIDEM TARTRATE [Suspect]
     Dosage: 12.5 MG
     Route: 048
     Dates: start: 20070608, end: 20070724
  7. BRUFEN [Concomitant]
     Indication: NASOPHARYNGITIS
     Route: 048
     Dates: start: 20070608, end: 20070611
  8. ASTOMIN [Concomitant]
     Indication: NASOPHARYNGITIS
     Route: 048
     Dates: start: 20070608, end: 20070611
  9. CERCINE [Concomitant]
     Indication: DEPRESSION
     Route: 048
     Dates: start: 20070330, end: 20070724
  10. ANAFRANIL [Suspect]
     Indication: DEPRESSION
     Dosage: 100 MG/DAY DIVIDED INTO 3 DOSES
     Route: 048
     Dates: end: 20070524
  11. ANAFRANIL [Suspect]
     Dosage: 75 MG/DAY DIVISED INTO 2 DOSES
     Route: 048
     Dates: start: 20070525, end: 20070724
  12. ANAFRANIL [Suspect]
     Dosage: 50 MG
     Route: 048
     Dates: start: 20070729

REACTIONS (1)
  - ILEUS [None]
